FAERS Safety Report 20999597 (Version 1)
Quarter: 2022Q2

REPORT INFORMATION
  Report Type: Report from Study
  Country: US (occurrence: US)
  Receive Date: 20220623
  Receipt Date: 20220623
  Transmission Date: 20220721
  Serious: Yes (Other)
  Sender: FDA-Public Use
  Company Number: US-KOREA IPSEN Pharma-2022-17882

PATIENT
  Age: 51 Year
  Sex: Male

DRUGS (1)
  1. SOMATULINE DEPOT [Suspect]
     Active Substance: LANREOTIDE ACETATE
     Indication: Carcinoid tumour of the small bowel
     Route: 058
     Dates: start: 20210122

REACTIONS (10)
  - Hepatic neoplasm [Unknown]
  - Gallbladder disorder [Unknown]
  - Injection site pain [Unknown]
  - Injection site mass [Unknown]
  - Gout [Unknown]
  - Flushing [Unknown]
  - Fatigue [Unknown]
  - Dyspnoea [Unknown]
  - Emotional distress [Unknown]
  - Malaise [Unknown]
